FAERS Safety Report 5073781-4 (Version None)
Quarter: 2006Q3

REPORT INFORMATION
  Report Type: 
  Country: None (occurrence: None)
  Receive Date: 20060808
  Receipt Date: 20060313
  Transmission Date: 20061208
  Serious: Yes (Death, Other)
  Sender: FDA-Public Use
  Company Number: PHEH2006US03656

PATIENT
  Age: 63 Year
  Sex: Male

DRUGS (6)
  1. ZOMETA [Suspect]
     Indication: OSTEOLYSIS
     Dosage: 4 MG MONTHLY
     Dates: start: 20020401, end: 20041112
  2. PAXIL [Concomitant]
     Indication: ANXIETY
     Dosage: 20 MG, QD
  3. ZYPREXA [Concomitant]
     Indication: PANIC ATTACK
     Dosage: 2.5 MG, QD
  4. METHADONE HCL [Concomitant]
     Indication: BACK PAIN
     Dosage: 10 MG, QD
  5. RADIATION THERAPY [Concomitant]
     Dosage: RIGHT MANDIBLE
     Dates: start: 20040901
  6. PAMIDRONATE DISODIUM [Suspect]
     Dates: end: 20050201

REACTIONS (8)
  - COMPLETED SUICIDE [None]
  - HYPOAESTHESIA [None]
  - MALIGNANT NEOPLASM PROGRESSION [None]
  - OSTEOLYSIS [None]
  - OSTEONECROSIS [None]
  - PAIN IN JAW [None]
  - TOOTH EXTRACTION [None]
  - WOUND DRAINAGE [None]
